FAERS Safety Report 7961120-8 (Version None)
Quarter: 2011Q4

REPORT INFORMATION
  Report Type: 
  Country: None (occurrence: None)
  Receive Date: 20111202
  Receipt Date: 20111121
  Transmission Date: 20120403
  Serious: Yes (Hospitalization)
  Sender: FDA-Public Use
  Company Number: 2011MA016712

PATIENT
  Age: 2 Day
  Sex: Female
  Weight: 2.54 kg

DRUGS (2)
  1. LIDOCAINE HCL [Suspect]
     Indication: PAIN MANAGEMENT
     Dosage: 0.5 CC 2%;UNK;INJ
  2. EPINEPHRINE [Suspect]
     Indication: PRODUCT USED FOR UNKNOWN INDICATION
     Dosage: 1 :100,000;UNK;INJ

REACTIONS (2)
  - CYANOSIS [None]
  - METHAEMOGLOBINAEMIA [None]
